FAERS Safety Report 9376016 (Version 2)
Quarter: 2013Q3

REPORT INFORMATION
  Report Type: Spontaneous
  Country: US (occurrence: US)
  Receive Date: 20130629
  Receipt Date: 20130723
  Transmission Date: 20140515
  Serious: No
  Sender: FDA-Public Use
  Company Number: US-B.I. PHARMACEUTICALS,INC./RIDGEFIELD-2013-BI-18442BP

PATIENT
  Age: 85 Year
  Sex: Female
  Weight: 61 kg

DRUGS (3)
  1. PRADAXA [Suspect]
     Indication: ATRIAL FIBRILLATION
     Dosage: 300 MG
     Route: 048
     Dates: start: 2012, end: 201303
  2. PRADAXA [Suspect]
     Indication: CEREBROVASCULAR ACCIDENT PROPHYLAXIS
     Dosage: 150 MG
     Route: 048
     Dates: start: 201303
  3. DILTIAZEM [Concomitant]

REACTIONS (7)
  - Fall [Recovered/Resolved]
  - Laceration [Recovered/Resolved]
  - Contusion [Recovered/Resolved]
  - Laceration [Not Recovered/Not Resolved]
  - Laceration [Recovered/Resolved]
  - Haemorrhage [Recovered/Resolved]
  - Haemorrhoidal haemorrhage [Recovered/Resolved]
